FAERS Safety Report 15564093 (Version 2)
Quarter: 2018Q4

REPORT INFORMATION
  Report Type: Spontaneous
  Country: FR (occurrence: FR)
  Receive Date: 20181030
  Receipt Date: 20181114
  Transmission Date: 20190205
  Serious: Yes (Congenital Anomaly, Other)
  Sender: FDA-Public Use
  Company Number: FR-AUROBINDO-AUR-APL-2018-052576

PATIENT
  Age: 2 Month
  Sex: Male
  Weight: 6.9 kg

DRUGS (3)
  1. NEVIRAPINE. [Suspect]
     Active Substance: NEVIRAPINE
     Indication: HIV INFECTION
     Dosage: 1.5 ML, QD
     Route: 048
     Dates: start: 20151110, end: 20160721
  2. TENOFOVIR DISOPROXIL [Suspect]
     Active Substance: TENOFOVIR DISOPROXIL
     Indication: HIV INFECTION
     Dosage: 245 MILLIGRAM, ONCE A DAY
     Route: 064
     Dates: start: 20151110, end: 20160721
  3. RALTEGRAVIR. [Suspect]
     Active Substance: RALTEGRAVIR
     Indication: HIV INFECTION
     Dosage: 400 MG, QD
     Route: 064
     Dates: start: 20151110, end: 20161208

REACTIONS (4)
  - Laryngomalacia [Unknown]
  - Brachydactyly [Unknown]
  - Foetal exposure during pregnancy [Recovered/Resolved]
  - Congenital umbilical hernia [Unknown]

NARRATIVE: CASE EVENT DATE: 20161019
